FAERS Safety Report 10224064 (Version 2)
Quarter: 2014Q2

REPORT INFORMATION
  Report Type: Spontaneous
  Country: GB (occurrence: GB)
  Receive Date: 20140609
  Receipt Date: 20140609
  Transmission Date: 20141212
  Serious: Yes (Hospitalization)
  Sender: FDA-Public Use
  Company Number: GB-JNJFOC-NSADSS2001000565

PATIENT
  Sex: Female

DRUGS (13)
  1. REMICADE [Suspect]
     Indication: RHEUMATOID ARTHRITIS
     Route: 041
     Dates: start: 20010515, end: 20010515
  2. REMICADE [Suspect]
     Indication: RHEUMATOID ARTHRITIS
     Route: 041
     Dates: start: 20010418, end: 20010418
  3. REMICADE [Suspect]
     Indication: RHEUMATOID ARTHRITIS
     Route: 041
     Dates: start: 20010404, end: 20010404
  4. CALOGEN [Concomitant]
     Route: 065
  5. CALCICHEW [Concomitant]
  6. CLEXANE [Concomitant]
     Route: 058
  7. GRANISETRON [Concomitant]
     Route: 065
  8. MOTILIUM [Concomitant]
     Route: 065
  9. OMEPRAZOLE [Concomitant]
     Route: 065
  10. PROTHIADEN [Concomitant]
     Route: 065
  11. ARTHROTEC [Concomitant]
     Route: 048
  12. FOLATE [Concomitant]
     Route: 048
  13. METHOTREXATE [Concomitant]
     Route: 048

REACTIONS (4)
  - Tuberculosis [Recovered/Resolved]
  - Nausea [Recovered/Resolved]
  - Vomiting [Recovered/Resolved]
  - Pleural effusion [Recovered/Resolved]
